FAERS Safety Report 5953827-9 (Version None)
Quarter: 2008Q4

REPORT INFORMATION
  Report Type: 
  Country: None (occurrence: None)
  Receive Date: 20081114
  Receipt Date: 20081103
  Transmission Date: 20090506
  Serious: Yes (Death, Other)
  Sender: FDA-Public Use
  Company Number: CA-PFIZER INC-2008031918

PATIENT
  Sex: Male
  Weight: 72 kg

DRUGS (3)
  1. CHAMPIX [Suspect]
     Route: 048
     Dates: start: 20080206
  2. ALCOHOL [Suspect]
  3. OMEPRAZOLE [Concomitant]
     Route: 048
     Dates: start: 20080205

REACTIONS (13)
  - ACCIDENTAL DEATH [None]
  - ARTERIOSCLEROSIS CORONARY ARTERY [None]
  - BRAIN HYPOXIA [None]
  - CARDIAC VENTRICULAR DISORDER [None]
  - CARDIOMEGALY [None]
  - COMPLETED SUICIDE [None]
  - ERECTILE DYSFUNCTION [None]
  - GRANULOMATOUS LIVER DISEASE [None]
  - HEADACHE [None]
  - NAUSEA [None]
  - PSYCHOTIC DISORDER [None]
  - SLEEP DISORDER [None]
  - VOMITING [None]
